FAERS Safety Report 14081205 (Version 1)
Quarter: 2017Q4

REPORT INFORMATION
  Report Type: Spontaneous
  Country: US (occurrence: US)
  Receive Date: 20171013
  Receipt Date: 20171013
  Transmission Date: 20180321
  Serious: Yes (Disabling)
  Sender: FDA-Public Use
  Company Number: None

PATIENT
  Age: 59 Year
  Sex: Female
  Weight: 99 kg

DRUGS (6)
  1. OMEPRAZOLE. [Concomitant]
     Active Substance: OMEPRAZOLE
  2. MIRALAX [Suspect]
     Active Substance: POLYETHYLENE GLYCOL 3350
     Indication: IMPAIRED GASTRIC EMPTYING
     Dosage: ?          QUANTITY:2 TABLESPOON(S);?
     Route: 048
  3. DULCOLAX NOS [Concomitant]
     Active Substance: BISACODYL OR DOCUSATE SODIUM
  4. FLUTICASONE. [Concomitant]
     Active Substance: FLUTICASONE
  5. VITAMIN D [Concomitant]
     Active Substance: CHOLECALCIFEROL
  6. LOSARTAN-HYDROCHLOROTHIAZIDE [Concomitant]
     Active Substance: HYDROCHLOROTHIAZIDE\LOSARTAN

REACTIONS (2)
  - Tremor [None]
  - Tic [None]

NARRATIVE: CASE EVENT DATE: 20141001
